FAERS Safety Report 4715564-8 (Version None)
Quarter: 2005Q3

REPORT INFORMATION
  Report Type: 
  Country: None (occurrence: None)
  Receive Date: 20050715
  Receipt Date: 20050715
  Transmission Date: 20060218
  Serious: Yes (Hospitalization)
  Sender: FDA-Public Use
  Company Number: None

PATIENT
  Sex: Male
  Weight: 118.5 kg

DRUGS (3)
  1. FLUDARABINE [Suspect]
     Indication: LYMPHOCYTIC LEUKAEMIA
     Dosage: 62 MG QD X 5 INTRAVENOUS
     Route: 042
     Dates: start: 20050310, end: 20050314
  2. BUSULFAN [Suspect]
     Dosage: 354MG QD X 4 INTRAVENOUS
     Route: 042
     Dates: start: 20050311, end: 20050314
  3. CAMPATH [Concomitant]

REACTIONS (4)
  - ABDOMINAL PAIN [None]
  - BACK PAIN [None]
  - LEUKAEMIA RECURRENT [None]
  - LIVER FUNCTION TEST ABNORMAL [None]
